FAERS Safety Report 8237837-7 (Version None)
Quarter: 2012Q1

REPORT INFORMATION
  Report Type: 
  Country: None (occurrence: None)
  Receive Date: 20120327
  Receipt Date: 20120319
  Transmission Date: 20120608
  Serious: Yes (Hospitalization, Other)
  Sender: FDA-Public Use
  Company Number: US-AMGEN-USASP2012017580

PATIENT
  Age: 47 Year
  Sex: Female

DRUGS (2)
  1. ENBREL [Suspect]
     Indication: RHEUMATOID ARTHRITIS
     Dosage: 50 MG, QWK
     Dates: start: 20050101
  2. TREXALL [Concomitant]
     Dosage: 15 MG, UNK
     Dates: start: 19960101

REACTIONS (11)
  - DYSPHONIA [None]
  - CHEST PAIN [None]
  - RHEUMATOID LUNG [None]
  - OROPHARYNGEAL PAIN [None]
  - TACHYCARDIA [None]
  - PARANASAL SINUS HYPERSECRETION [None]
  - DYSPNOEA [None]
  - RHINORRHOEA [None]
  - THERAPEUTIC RESPONSE DECREASED [None]
  - LUNG NEOPLASM [None]
  - HYPERSENSITIVITY [None]
